FAERS Safety Report 20986664 (Version 1)
Quarter: 2022Q2

REPORT INFORMATION
  Report Type: Spontaneous
  Country: GB (occurrence: GB)
  Receive Date: 20220621
  Receipt Date: 20220621
  Transmission Date: 20220721
  Serious: Yes (Hospitalization)
  Sender: FDA-Public Use
  Company Number: GB-VERTEX PHARMACEUTICALS-2022-009163

PATIENT
  Sex: Male

DRUGS (3)
  1. ELEXACAFTOR\IVACAFTOR\TEZACAFTOR [Suspect]
     Active Substance: ELEXACAFTOR\IVACAFTOR\TEZACAFTOR
     Indication: Cystic fibrosis
     Dosage: 2 TABS IN THE AM (75MG IVACAFTOR/50MG TEZACAFTOR/100MG ELEXACAFTOR)
     Route: 048
  2. KALYDECO [Suspect]
     Active Substance: IVACAFTOR
     Indication: Cystic fibrosis
     Dosage: 1 TAB IN THE EVENING
     Route: 048
  3. KALYDECO [Suspect]
     Active Substance: IVACAFTOR
     Dosage: TWICE A DAY
     Route: 048

REACTIONS (3)
  - Rash [Unknown]
  - Vomiting [Unknown]
  - Pyrexia [Unknown]
